FAERS Safety Report 21644809 (Version 3)
Quarter: 2025Q3

REPORT INFORMATION
  Report Type: Report from Study
  Country: EG (occurrence: EG)
  Receive Date: 20221125
  Receipt Date: 20250821
  Transmission Date: 20251021
  Serious: Yes (Other)
  Sender: NOVARTIS
  Company Number: EG-002147023-NVSC2022EG260788

PATIENT
  Age: 34 Year
  Sex: Female
  Weight: 80 kg

DRUGS (8)
  1. GILENYA [Suspect]
     Active Substance: FINGOLIMOD HYDROCHLORIDE
     Indication: Multiple sclerosis
     Dosage: 1 DOSAGE FORM, QD
     Route: 048
     Dates: start: 202111
  2. GILENYA [Suspect]
     Active Substance: FINGOLIMOD HYDROCHLORIDE
     Dosage: 1 DOSAGE FORM, QD
     Route: 048
     Dates: start: 202112
  3. GILENYA [Suspect]
     Active Substance: FINGOLIMOD HYDROCHLORIDE
     Dosage: 1 DOSAGE FORM, QD
     Route: 048
     Dates: start: 202201, end: 20220129
  4. ENOXAPARIN SODIUM [Concomitant]
     Active Substance: ENOXAPARIN SODIUM
     Indication: Coagulopathy
     Dosage: 1 DOSAGE FORM, QD
     Route: 048
     Dates: start: 202202
  5. OMEGA 3 [Concomitant]
     Active Substance: CAPSAICIN
     Indication: Vitamin supplementation
     Dosage: 1 DOSAGE FORM, QD (10 DAYS AGO, ONE CAPSULE PER DAY)
     Route: 048
  6. VITAMIN D [Concomitant]
     Active Substance: VITAMIN D NOS
     Indication: Vitamin D deficiency
     Dosage: UNK, QD (15 DAYS AGO, ONCE PER DAY WITHOUT REPETITION)
     Route: 065
  7. DEXAMETHASONE [Concomitant]
     Active Substance: DEXAMETHASONE
     Indication: Multiple sclerosis
     Dosage: UNK, QD (ONE AMPULE PER DAY WITHOUT REPETITION)
     Route: 065
     Dates: start: 20221118
  8. SOLU-MEDROL [Concomitant]
     Active Substance: METHYLPREDNISOLONE SODIUM SUCCINATE
     Indication: Multiple sclerosis
     Route: 065

REACTIONS (5)
  - Uterine cyst [Unknown]
  - Post procedural haemorrhage [Unknown]
  - Maternal exposure during pregnancy [Unknown]
  - Haematological infection [Unknown]
  - Premature delivery [Unknown]

NARRATIVE: CASE EVENT DATE: 20220808
